FAERS Safety Report 16983547 (Version 2)
Quarter: 2020Q1

REPORT INFORMATION
  Report Type: Spontaneous
  Country: US (occurrence: US)
  Receive Date: 20191101
  Receipt Date: 20200220
  Transmission Date: 20200409
  Serious: Yes (Death, Other)
  Sender: FDA-Public Use
  Company Number: US-REGENERON PHARMACEUTICALS, INC.-2019-63254

PATIENT

DRUGS (1)
  1. EYLEA [Suspect]
     Active Substance: AFLIBERCEPT
     Indication: MACULAR DEGENERATION
     Dosage: 2 MG, ONCE A MONTH, LEFT EYE
     Route: 031
     Dates: start: 20141012, end: 20190429

REACTIONS (2)
  - Cardiac failure [Fatal]
  - Dyspnoea [Unknown]
